FAERS Safety Report 8366220-9 (Version None)
Quarter: 2012Q2

REPORT INFORMATION
  Report Type: 
  Country: None (occurrence: None)
  Receive Date: 20120517
  Receipt Date: 20120511
  Transmission Date: 20120825
  Serious: Yes (Hospitalization)
  Sender: FDA-Public Use
  Company Number: PHEH2011US03700

PATIENT
  Sex: Female
  Weight: 54 kg

DRUGS (16)
  1. ASPIRIN [Concomitant]
     Dosage: 81 MG, UNK
  2. SIMVASTATIN [Concomitant]
     Dosage: 40 MG, UNK
  3. METOPROLOL TARTRATE [Concomitant]
     Dosage: 25 MG, UNK
  4. EXJADE [Suspect]
     Indication: IRON OVERLOAD
     Dosage: UNK UKN, UNK
     Route: 048
  5. EXJADE [Suspect]
     Indication: IRON METABOLISM DISORDER
     Dosage: 500 MG, BID
     Route: 048
     Dates: start: 20110301
  6. WARFARIN SODIUM [Concomitant]
     Dosage: 3 MG, UNK
  7. EXJADE [Suspect]
     Dosage: 500 MG, DAILY
     Route: 048
  8. COLACE [Concomitant]
     Dosage: 50 MG, UNK
  9. FOLIC ACID [Concomitant]
     Dosage: 1 MG, UNK
  10. LISINOPRIL [Concomitant]
  11. CIPROFLOXACIN [Concomitant]
  12. EXJADE [Suspect]
     Indication: HAEMOGLOBINURIA
     Dosage: 500 MG, DAILY
     Route: 048
     Dates: start: 20110302
  13. EXJADE [Suspect]
     Dosage: 125 MG, DAILY
     Route: 048
     Dates: start: 20110629
  14. CALCIUM CARBONATE [Concomitant]
     Dosage: 600 MG, UNK
  15. VITAMIN B-12 [Concomitant]
  16. MULTI-VITAMIN [Concomitant]

REACTIONS (3)
  - CARDIAC FAILURE CONGESTIVE [None]
  - NERVOUS SYSTEM DISORDER [None]
  - VIRAL INFECTION [None]
